FAERS Safety Report 5653180-4 (Version None)
Quarter: 2008Q1

REPORT INFORMATION
  Report Type: 
  Country: None (occurrence: None)
  Receive Date: 20080131
  Receipt Date: 20071015
  Transmission Date: 20080703
  Serious: No
  Sender: FDA-Public Use
  Company Number: US200710003892

PATIENT
  Age: 61 Year
  Sex: Female

DRUGS (17)
  1. BYETTA [Suspect]
     Indication: TYPE 2 DIABETES MELLITUS
     Dosage: 5 UG, 2/D, SUBCUTANEOUS; 10 UG, 2/D, SUBCUTANEOUS
     Route: 058
     Dates: start: 20070101, end: 20070101
  2. BYETTA [Suspect]
     Indication: TYPE 2 DIABETES MELLITUS
     Dosage: 5 UG, 2/D, SUBCUTANEOUS; 10 UG, 2/D, SUBCUTANEOUS
     Route: 058
     Dates: start: 20070101, end: 20071002
  3. EXENATIDE 5MCG PEN, DISPOSABLE DEVICE [Concomitant]
  4. LANTUS [Concomitant]
  5. INSULIN ASPART (INSULIN ASPART) [Concomitant]
  6. GLIMEPIRIDE [Concomitant]
  7. NORVASC [Concomitant]
  8. ASPIRIN [Concomitant]
  9. TOPROL-XL [Concomitant]
  10. ZOCOR [Concomitant]
  11. LISINOPRIL [Concomitant]
  12. ISOSORBIDE (ISOSORBIDE) [Concomitant]
  13. RANOLAZINE HYDROCHLORIDE (RANOLAZINE HYDROCHLORIDE) [Concomitant]
  14. FUROSEMIDE [Concomitant]
  15. POTASSIUM CHLORIDE [Concomitant]
  16. SYNTHROID [Concomitant]
  17. NEXIUM [Concomitant]

REACTIONS (4)
  - BLOOD GLUCOSE INCREASED [None]
  - DYSPNOEA [None]
  - OEDEMA PERIPHERAL [None]
  - SWELLING [None]
